FAERS Safety Report 5802022-2 (Version None)
Quarter: 2008Q3

REPORT INFORMATION
  Report Type: 
  Country: None (occurrence: None)
  Receive Date: 20080702
  Receipt Date: 20080620
  Transmission Date: 20090109
  Serious: Yes (Death, Hospitalization)
  Sender: FDA-Public Use
  Company Number: 163-21880-08050792

PATIENT
  Age: 72 Year
  Sex: Male
  Weight: 81.3 kg

DRUGS (11)
  1. REVLIMID [Suspect]
     Indication: ACUTE MYELOID LEUKAEMIA
     Dosage: 50 MG, QD, ORAL
     Route: 048
     Dates: start: 20080422, end: 20080617
  2. LOVASTATIN [Concomitant]
  3. ENALAPRIL MALEATE [Concomitant]
  4. ALLOPURINOL [Concomitant]
  5. LEVOTHYROXINE SODIUM [Concomitant]
  6. FISH OIL (FISH OIL) [Concomitant]
  7. ALBUTEROL (SALBUTAMOL) (INHALANT) [Concomitant]
  8. CIPROFLOXACIN [Concomitant]
  9. NEXIUM [Concomitant]
  10. FLUCONAZOLE [Concomitant]
  11. VALACYCLOVIR [Concomitant]

REACTIONS (14)
  - ARRHYTHMIA [None]
  - ATRIAL FIBRILLATION [None]
  - DYSPHAGIA [None]
  - FATIGUE [None]
  - HAEMOGLOBIN DECREASED [None]
  - HYPERNATRAEMIA [None]
  - HYPOALBUMINAEMIA [None]
  - HYPOCALCAEMIA [None]
  - HYPOKALAEMIA [None]
  - NEUTROPENIA [None]
  - TACHYCARDIA [None]
  - THROMBOCYTOPENIA [None]
  - VOMITING [None]
  - WHITE BLOOD CELL COUNT DECREASED [None]
